FAERS Safety Report 5398139-X (Version None)
Quarter: 2007Q3

REPORT INFORMATION
  Report Type: 
  Country: None (occurrence: None)
  Receive Date: 20070726
  Receipt Date: 20070717
  Transmission Date: 20080115
  Serious: Yes (Hospitalization)
  Sender: FDA-Public Use
  Company Number: IT-PFIZER INC-2007057604

PATIENT
  Age: 4 Year
  Sex: Female
  Weight: 17 kg

DRUGS (2)
  1. AZITHROMYCIN [Suspect]
     Dosage: DAILY DOSE:300MG
     Route: 048
  2. TROZOCINA [Suspect]
     Dosage: DAILY DOSE:340MG
     Route: 048

REACTIONS (3)
  - MEDICATION ERROR [None]
  - NO ADVERSE REACTION [None]
  - OVERDOSE [None]
